FAERS Safety Report 7619149-5 (Version None)
Quarter: 2011Q3

REPORT INFORMATION
  Report Type: 
  Country: None (occurrence: None)
  Receive Date: 20110718
  Receipt Date: 20110708
  Transmission Date: 20111222
  Serious: Yes (Hospitalization, Disabling, Other)
  Sender: FDA-Public Use
  Company Number: US-ASTRAZENECA-2010SE32294

PATIENT
  Age: 78 Year
  Sex: Female
  Weight: 71.2 kg

DRUGS (190)
  1. ACCOLATE [Suspect]
     Route: 048
     Dates: start: 20091005, end: 20091123
  2. ACCOLATE [Suspect]
     Route: 048
     Dates: start: 20091110, end: 20100916
  3. IMDUR [Concomitant]
     Route: 048
     Dates: start: 20090831, end: 20091005
  4. EXFORGE [Concomitant]
     Dosage: 5/60 MG ONCE  A DAY
     Route: 048
     Dates: start: 20080724, end: 20090203
  5. ISOSORBIDE MONONITRATE [Concomitant]
     Route: 048
     Dates: start: 20081008, end: 20081204
  6. PROPOXYPHENE-ACETAMIN NAPSYLATE [Concomitant]
     Indication: PAIN
     Route: 048
     Dates: start: 20080724, end: 20080808
  7. PROPOXYPHENE-ACETAMIN NAPSYLATE [Concomitant]
     Route: 048
     Dates: start: 20080808, end: 20080912
  8. PROPOXYPHENE-ACETAMIN NAPSYLATE [Concomitant]
     Route: 048
     Dates: start: 20081103, end: 20081216
  9. PROPOXYPHENE-ACETAMIN NAPSYLATE [Concomitant]
     Route: 048
     Dates: start: 20090921, end: 20091123
  10. LORAZEPAM [Concomitant]
     Dosage: ONE-TWO TABLETS EVERY DAY
     Route: 048
     Dates: start: 20081103, end: 20081204
  11. LORAZEPAM [Concomitant]
     Dosage: ONE-TWO TABLETS EVERY DAY AS NEEDED
     Route: 048
     Dates: start: 20081204, end: 20090804
  12. LORAZEPAM [Concomitant]
     Dosage: ONE-TWO TABLETS EVERY DAY
     Route: 048
     Dates: start: 20090702, end: 20090814
  13. LORAZEPAM [Concomitant]
     Dosage: 1-2 TABLETS ONCE A DAY AS NEEDED
     Route: 048
     Dates: start: 20091111, end: 20100104
  14. LORAZEPAM [Concomitant]
     Dosage: 1-2 TABLETS ONCE A DAY AS NEEDED
     Route: 048
     Dates: start: 20100910
  15. AMITRIPTYLINE HCL [Concomitant]
     Route: 048
     Dates: start: 20080724, end: 20080915
  16. AMITRIPTYLINE HCL [Concomitant]
     Route: 048
     Dates: start: 20100210, end: 20100224
  17. AMOXIL [Concomitant]
     Route: 048
     Dates: start: 20080915, end: 20090203
  18. POTASSIUM CHLORIDE [Concomitant]
     Route: 048
     Dates: start: 20090203, end: 20090309
  19. ALUPENT [Concomitant]
     Dosage: AS NEEDED
     Dates: start: 20080920, end: 20081117
  20. ALUPENT [Concomitant]
     Dates: start: 20101117
  21. DARVOCET-N 50 [Concomitant]
     Route: 048
     Dates: start: 20090728, end: 20090804
  22. XOPENEX HFA [Concomitant]
     Dosage: 1.25/0.5 MG/ML EVERY FOUR HOURS
     Dates: start: 20090224, end: 20090804
  23. DICYCLOMINE [Concomitant]
     Route: 048
     Dates: start: 20091110, end: 20100706
  24. CELEXA [Concomitant]
     Route: 048
     Dates: start: 20101120
  25. TESSALON [Concomitant]
     Route: 048
     Dates: start: 20091005, end: 20091021
  26. TESSALON [Concomitant]
     Route: 048
     Dates: start: 20091110, end: 20091123
  27. METHIMAZOLE [Concomitant]
     Route: 048
     Dates: start: 20091207, end: 20091229
  28. BACTROBAN [Concomitant]
     Route: 061
  29. IMDUR [Concomitant]
     Route: 048
     Dates: start: 20100802
  30. FUROSEMIDE [Concomitant]
     Route: 048
     Dates: start: 20100901
  31. ISOSORBIDE MONONITRATE [Concomitant]
     Route: 048
     Dates: start: 20081204, end: 20090416
  32. PROPOXYPHENE-ACETAMIN NAPSYLATE [Concomitant]
     Route: 048
     Dates: start: 20081216, end: 20090203
  33. PROPOXYPHENE-ACETAMIN NAPSYLATE [Concomitant]
     Route: 048
     Dates: start: 20090804, end: 20090804
  34. POTASSIUM CHLORIDE [Concomitant]
     Route: 048
     Dates: start: 20080724, end: 20090203
  35. LORAZEPAM [Concomitant]
     Dosage: ONE-TWO TABLETS EVERY DAY AS NEEDED
     Route: 048
     Dates: start: 20081010, end: 20081103
  36. LORAZEPAM [Concomitant]
     Dosage: 1-2 TABLETS ONCE A DAY AS NEEDED
     Route: 048
     Dates: start: 20100104, end: 20100310
  37. LORAZEPAM [Concomitant]
     Dosage: 1-2 TABLETS ONCE A DAY AS NEEDED
     Route: 048
     Dates: start: 20100706, end: 20100910
  38. AMITRIPTYLINE HCL [Concomitant]
     Route: 048
     Dates: start: 20090107, end: 20090804
  39. AMITRIPTYLINE HCL [Concomitant]
     Route: 048
     Dates: start: 20100901
  40. AMOXIL [Concomitant]
     Route: 048
     Dates: start: 20091110, end: 20091123
  41. POTASSIUM CHLORIDE [Concomitant]
     Route: 048
     Dates: start: 20091005, end: 20100224
  42. POTASSIUM CHLORIDE [Concomitant]
     Route: 048
     Dates: start: 20091110, end: 20100210
  43. ZESTORETIC [Concomitant]
     Dosage: 12.5/20 MG DAILY
     Route: 048
     Dates: start: 20090330, end: 20090804
  44. ALBUTEROL SULFATE AUTOHALER [Concomitant]
     Indication: WHEEZING
     Dosage: EVERY FOUR OR SIX HOURS
     Dates: start: 20090416, end: 20090901
  45. CELEXA [Concomitant]
     Route: 048
     Dates: start: 20090708, end: 20090813
  46. CELEXA [Concomitant]
     Dosage: TAKE AFTER DINNER
     Route: 048
     Dates: start: 20090813, end: 20091109
  47. CELEXA [Concomitant]
     Route: 048
     Dates: start: 20091109, end: 20091110
  48. TESSALON [Concomitant]
     Indication: COUGH
     Route: 048
     Dates: start: 20091005, end: 20091021
  49. ACCOLATE [Suspect]
     Route: 048
     Dates: start: 20091110, end: 20100916
  50. ACCOLATE [Suspect]
     Route: 048
     Dates: start: 20100916
  51. FUROSEMIDE [Concomitant]
     Route: 048
     Dates: start: 20100329, end: 20100329
  52. PRAVACHOL [Concomitant]
     Route: 048
     Dates: start: 20081009, end: 20090203
  53. PROPOXYPHENE-ACETAMIN NAPSYLATE [Concomitant]
     Route: 048
     Dates: start: 20081216, end: 20090203
  54. HYZAAR [Concomitant]
     Dosage: 12.5/50 MG ONCE A ADY
     Route: 048
     Dates: start: 20090313, end: 20090317
  55. LORAZEPAM [Concomitant]
     Route: 048
     Dates: start: 20080724, end: 20080822
  56. LORAZEPAM [Concomitant]
     Dosage: ONE-TWO TABLETS EVERY DAY AS NEEDED
     Route: 048
     Dates: start: 20080822, end: 20081010
  57. LORAZEPAM [Concomitant]
     Dosage: 1-2 TABLETS ONCE A DAY
     Route: 048
     Dates: start: 20090522, end: 20090804
  58. LORAZEPAM [Concomitant]
     Dosage: ONE-TWO TABLETS EVERY DAY
     Route: 048
     Dates: start: 20100310, end: 20100409
  59. LORAZEPAM [Concomitant]
     Dosage: 1-2 TABLETS ONCE A DAY AS NEEDED
     Route: 048
     Dates: start: 20100310, end: 20100409
  60. LORAZEPAM [Concomitant]
     Dosage: 1-2 TABLETS ONCE A DAY
     Route: 048
     Dates: start: 20100706, end: 20100910
  61. LORAZEPAM [Concomitant]
     Dosage: 1-2 TABLETS ONCE A DAY
     Route: 048
     Dates: start: 20100910
  62. AMITRIPTYLINE HCL [Concomitant]
     Route: 048
     Dates: start: 20091005, end: 20100210
  63. POTASSIUM CHLORIDE [Concomitant]
     Route: 048
     Dates: start: 20081018, end: 20090203
  64. CIPROFLOXACIN [Concomitant]
     Route: 048
     Dates: start: 20081219, end: 20090203
  65. DARVOCET-N 50 [Concomitant]
     Dosage: ONE TABLET FOUR TO SIX HOURS
     Route: 048
     Dates: start: 20090203, end: 20090325
  66. SINGULAIR [Concomitant]
     Route: 048
     Dates: start: 20100427, end: 20100903
  67. PRAVASTATIN [Concomitant]
     Route: 048
     Dates: start: 20090602, end: 20100507
  68. TESSALON [Concomitant]
     Route: 048
     Dates: start: 20091021, end: 20091110
  69. INFLUENZA VIRUS VACC [Concomitant]
     Dosage: ONCE
     Dates: start: 20100903, end: 20100903
  70. ACCOLATE [Suspect]
     Route: 048
     Dates: start: 20080724, end: 20081024
  71. ACCOLATE [Suspect]
     Route: 048
     Dates: start: 20090409, end: 20091123
  72. FUROSEMIDE [Concomitant]
     Route: 048
     Dates: start: 20090804, end: 20100329
  73. ISOSORBIDE MONONITRATE [Concomitant]
     Route: 048
     Dates: start: 20080724, end: 20081008
  74. ISOSORBIDE MONONITRATE [Concomitant]
     Route: 048
     Dates: start: 20090302, end: 20091005
  75. PRAVACHOL [Concomitant]
     Route: 048
     Dates: start: 20080724, end: 20081009
  76. PROPOXYPHENE-ACETAMIN NAPSYLATE [Concomitant]
     Route: 048
     Dates: start: 20090804, end: 20091005
  77. PROPOXYPHENE-ACETAMIN NAPSYLATE [Concomitant]
     Dosage: 650/100 MG TWO TIMES A DAY
     Route: 048
     Dates: start: 20100427
  78. LORAZEPAM [Concomitant]
     Dosage: ONE-TWO TABLETS EVERY DAY AS NEEDED
     Route: 048
     Dates: start: 20081103, end: 20081204
  79. LORAZEPAM [Concomitant]
     Dosage: ONE-TWO TABLETS EVERY DAY
     Route: 048
     Dates: start: 20090814, end: 20090921
  80. LORAZEPAM [Concomitant]
     Dosage: 1-2 TABLETS ONCE A DAY AS NEEDED
     Route: 048
     Dates: start: 20090914, end: 20090921
  81. LORAZEPAM [Concomitant]
     Dosage: 1-2 TABLETS ONCE A DAY AS NEEDED
     Route: 048
     Dates: start: 20100409, end: 20100427
  82. AMITRIPTYLINE HCL [Concomitant]
     Route: 048
     Dates: start: 20090504, end: 20090804
  83. AMITRIPTYLINE HCL [Concomitant]
     Route: 048
     Dates: start: 20090820, end: 20091005
  84. AMOXICILLIN [Concomitant]
     Dosage: 4 DF PRIOR TO  DENTAL PROCEDURE
     Route: 048
     Dates: start: 20090429, end: 20090804
  85. AMOXICILLIN [Concomitant]
     Route: 048
     Dates: start: 20100126, end: 20100427
  86. POTASSIUM CHLORIDE [Concomitant]
     Route: 048
     Dates: start: 20080903, end: 20081018
  87. ALUPENT [Concomitant]
     Dates: start: 20080920, end: 20081117
  88. DARVOCET-N 50 [Concomitant]
     Dosage: ONE TABLET FOUR TO SIX HOURS
     Route: 048
     Dates: start: 20090325, end: 20090417
  89. DARVOCET-N 50 [Concomitant]
     Dosage: ONE TABLET FOUR TO SIX HOURS
     Route: 048
     Dates: start: 20090417, end: 20090804
  90. DARVOCET-N 50 [Concomitant]
     Route: 048
     Dates: start: 20100706, end: 20100903
  91. XOPENEX HFA [Concomitant]
     Dosage: AS NEEDED
     Dates: start: 20090203, end: 20090416
  92. ZESTORETIC [Concomitant]
     Dosage: 12.5/20 MG DAILY
     Route: 048
     Dates: start: 20090317, end: 20090330
  93. CELEXA [Concomitant]
     Route: 048
     Dates: start: 20090430, end: 20090804
  94. CELEXA [Concomitant]
     Dosage: TAKE AFTER DINNER
     Route: 048
     Dates: start: 20090430, end: 20090804
  95. ACCOLATE [Suspect]
     Route: 048
     Dates: start: 20080724, end: 20081024
  96. ACCOLATE [Suspect]
     Route: 048
     Dates: start: 20081024, end: 20090203
  97. ACCOLATE [Suspect]
     Route: 048
     Dates: start: 20090409, end: 20091123
  98. IMDUR [Concomitant]
     Route: 048
     Dates: start: 20091005, end: 20100205
  99. OMEPRAZOLE [Concomitant]
     Route: 048
     Dates: start: 20091110, end: 20100310
  100. OMEPRAZOLE [Concomitant]
     Route: 048
     Dates: start: 20100310
  101. FUROSEMIDE [Concomitant]
     Route: 048
     Dates: start: 20090313, end: 20090804
  102. FUROSEMIDE [Concomitant]
     Route: 048
     Dates: start: 20100618, end: 20100901
  103. ISOSORBIDE MONONITRATE [Concomitant]
     Route: 048
     Dates: start: 20080724, end: 20080724
  104. PROPOXYPHENE-ACETAMIN NAPSYLATE [Concomitant]
     Route: 048
     Dates: start: 20081103, end: 20081216
  105. PROPOXYPHENE-ACETAMIN NAPSYLATE [Concomitant]
     Route: 048
     Dates: start: 20091005, end: 20100224
  106. HYZAAR [Concomitant]
     Dosage: 12.5/50 MG ONCE A ADY
     Route: 048
     Dates: start: 20080724, end: 20080724
  107. LORAZEPAM [Concomitant]
     Dosage: ONE-TWO TABLETS EVERY DAY
     Route: 048
     Dates: start: 20100409, end: 20100427
  108. AMOXIL [Concomitant]
     Dosage: 4 DF AS ONE DOSE AS DIRECTED
     Route: 048
     Dates: start: 20101014
  109. AMOXICILLIN [Concomitant]
     Route: 048
     Dates: start: 20080806, end: 20090203
  110. AMOXICILLIN [Concomitant]
     Route: 048
     Dates: start: 20090429, end: 20090804
  111. POTASSIUM CHLORIDE [Concomitant]
     Route: 048
     Dates: start: 20090309, end: 20090804
  112. POTASSIUM CHLORIDE [Concomitant]
     Route: 048
     Dates: start: 20090804, end: 20091005
  113. DARVOCET-N 50 [Concomitant]
     Route: 048
     Dates: start: 20090325, end: 20090417
  114. DARVOCET-N 50 [Concomitant]
     Dosage: ONE TABLET FOUR TO SIX HOURS
     Route: 048
     Dates: start: 20090602, end: 20090804
  115. DARVOCET-N 50 [Concomitant]
     Route: 048
     Dates: start: 20100706, end: 20100903
  116. XOPENEX HFA [Concomitant]
     Indication: BRONCHIAL HYPERREACTIVITY
     Dates: start: 20090203, end: 20090416
  117. DICYCLOMINE [Concomitant]
     Route: 048
     Dates: start: 20100706, end: 20100927
  118. VITAMIN-MINERAL COMPOUND TAB [Concomitant]
     Dosage: ONCE A DAY
     Route: 048
     Dates: start: 20090804, end: 20100903
  119. TESSALON [Concomitant]
     Route: 048
     Dates: start: 20091110, end: 20091123
  120. TESSALON [Concomitant]
     Route: 048
     Dates: start: 20091123, end: 20101207
  121. ACCOLATE [Suspect]
     Indication: ASTHMA
     Route: 048
     Dates: start: 20080719, end: 20080724
  122. ACCOLATE [Suspect]
     Route: 048
     Dates: start: 20091021, end: 20091110
  123. FUROSEMIDE [Concomitant]
     Route: 048
     Dates: start: 20100329, end: 20100618
  124. FUROSEMIDE [Concomitant]
     Route: 048
     Dates: start: 20100618, end: 20100618
  125. FLORA-Q [Concomitant]
     Route: 048
     Dates: start: 20080724, end: 20080724
  126. PROPOXYPHENE-ACETAMIN NAPSYLATE [Concomitant]
     Route: 048
     Dates: start: 20080912, end: 20081103
  127. PROPOXYPHENE-ACETAMIN NAPSYLATE [Concomitant]
     Route: 048
     Dates: start: 20100224, end: 20100427
  128. LORAZEPAM [Concomitant]
     Dosage: ONE-TWO TABLETS EVERY DAY
     Route: 048
     Dates: start: 20081204, end: 20090804
  129. LORAZEPAM [Concomitant]
     Dosage: ONE-TWO TABLETS EVERY DAY
     Route: 048
     Dates: start: 20100427, end: 20100706
  130. AMOXICILLIN [Concomitant]
     Route: 048
     Dates: start: 20081103, end: 20090203
  131. AMOXICILLIN [Concomitant]
     Route: 048
     Dates: start: 20100126, end: 20100427
  132. ALBUTEROL SULFATE HF [Concomitant]
     Dosage: TWO PUFFS EVERY FOUR TO SIX HOURS
     Route: 055
     Dates: start: 20080820, end: 20091005
  133. ALBUTEROL SULFATE HF [Concomitant]
     Dosage: AS NEEDED
     Route: 055
     Dates: start: 20080820, end: 20091005
  134. DARVOCET-N 50 [Concomitant]
     Indication: PAIN
     Route: 048
     Dates: start: 20090203, end: 20090325
  135. DARVOCET-N 50 [Concomitant]
     Route: 048
     Dates: start: 20090417, end: 20090804
  136. DARVOCET-N 50 [Concomitant]
     Dosage: ONE TABLET FOUR TO SIX HOURS
     Route: 048
     Dates: start: 20090728, end: 20090804
  137. DARVOCET-N 50 [Concomitant]
     Route: 048
     Dates: start: 20101020
  138. IPRATROPIUM BROMIDE [Concomitant]
     Route: 055
     Dates: start: 20090203, end: 20090804
  139. SINGULAIR [Concomitant]
     Route: 048
     Dates: start: 20090224, end: 20090804
  140. TESSALON [Concomitant]
     Route: 048
     Dates: start: 20091021, end: 20091110
  141. DOXYCYCLINE HYCLATE [Concomitant]
     Route: 048
     Dates: start: 20091216, end: 20100427
  142. ACCOLATE [Suspect]
     Route: 048
     Dates: start: 20091005, end: 20091123
  143. ACCOLATE [Suspect]
     Route: 048
     Dates: start: 20091021, end: 20091110
  144. IMDUR [Concomitant]
     Route: 048
     Dates: start: 20080724, end: 20080724
  145. OMEPRAZOLE [Concomitant]
     Route: 048
     Dates: start: 20090203, end: 20091123
  146. FUROSEMIDE [Concomitant]
     Route: 048
     Dates: start: 20080710, end: 20090203
  147. FUROSEMIDE [Concomitant]
     Route: 048
     Dates: start: 20080724, end: 20090203
  148. FUROSEMIDE [Concomitant]
     Route: 048
     Dates: start: 20090203, end: 20090313
  149. LORAZEPAM [Concomitant]
     Dosage: 1-2 TABLETS ONCE A DAY AS NEEDED
     Route: 048
     Dates: start: 20090522, end: 20090804
  150. LORAZEPAM [Concomitant]
     Dosage: 1-2 TABLETS ONCE A DAY AS NEEDED
     Route: 048
     Dates: start: 20090702, end: 20100814
  151. LORAZEPAM [Concomitant]
     Dosage: ONE-TWO TABLETS EVERY DAY
     Route: 048
     Dates: start: 20090921, end: 20091111
  152. LORAZEPAM [Concomitant]
     Dosage: 1-2 TABLETS ONCE A DAY AS NEEDED
     Route: 048
     Dates: start: 20090921, end: 20091111
  153. LORAZEPAM [Concomitant]
     Dosage: ONE-TWO TABLETS EVERY DAY
     Route: 048
     Dates: start: 20091111, end: 20100104
  154. LORAZEPAM [Concomitant]
     Dosage: ONE-TWO TABLETS EVERY DAY
     Route: 048
     Dates: start: 20100104, end: 20100310
  155. AMITRIPTYLINE HCL [Concomitant]
     Route: 048
     Dates: start: 20090921, end: 20091005
  156. AMITRIPTYLINE HCL [Concomitant]
     Route: 048
     Dates: start: 20100224, end: 20100901
  157. AMOXIL [Concomitant]
     Route: 048
     Dates: start: 20080805, end: 20090203
  158. AMOXIL [Concomitant]
     Dosage: 4 DF AS ONE DOSE AS DIRECTED
     Route: 048
     Dates: start: 20090522, end: 20090804
  159. ALBUTEROL SULFATE HF [Concomitant]
     Dosage: AS NEEDED
     Route: 055
     Dates: start: 20090804, end: 20091005
  160. POTASSIUM CHLORIDE [Concomitant]
     Route: 048
     Dates: start: 20090112, end: 20090203
  161. ALUPENT [Concomitant]
     Dates: start: 20080905, end: 20080920
  162. PNEUMOVAX 23 [Concomitant]
     Dosage: ONE SOLUTION
     Dates: start: 20081016, end: 20090302
  163. DARVOCET-N 50 [Concomitant]
     Route: 048
     Dates: start: 20090602, end: 20090804
  164. DICYCLOMINE [Concomitant]
     Route: 048
     Dates: start: 20090203, end: 20090804
  165. ALBUTEROL SULFATE AUTOHALER [Concomitant]
     Dosage: ONE VIAL EVERY FOUR HOURS
     Dates: start: 20100901
  166. DUONEB [Concomitant]
     Dosage: 2.5/0.5 MG/3 4 TIMES A DAY
     Dates: start: 20100209
  167. DOXYCYCLINE HYCLATE [Concomitant]
     Route: 048
     Dates: start: 20091123, end: 20091207
  168. LEVOTHYROXINE SODIUM [Concomitant]
     Route: 048
     Dates: start: 20100901
  169. ACCOLATE [Suspect]
     Indication: CHRONIC OBSTRUCTIVE PULMONARY DISEASE
     Route: 048
     Dates: start: 20080719, end: 20080724
  170. ACCOLATE [Suspect]
     Route: 048
     Dates: start: 20081024, end: 20090203
  171. ACCOLATE [Suspect]
     Route: 048
     Dates: start: 20100916
  172. IMDUR [Concomitant]
     Route: 048
     Dates: start: 20100205, end: 20100802
  173. EXFORGE [Concomitant]
     Dosage: 5/60 MG ONCE  A DAY
     Route: 048
     Dates: start: 20090313, end: 20090317
  174. ISOSORBIDE MONONITRATE [Concomitant]
     Route: 048
     Dates: start: 20090302, end: 20091005
  175. PROPOXYPHENE-ACETAMIN NAPSYLATE [Concomitant]
     Route: 048
     Dates: start: 20080912, end: 20081103
  176. LORAZEPAM [Concomitant]
     Route: 048
     Dates: start: 20080822, end: 20081010
  177. LORAZEPAM [Concomitant]
     Route: 048
     Dates: start: 20081010, end: 20081103
  178. LORAZEPAM [Concomitant]
     Dosage: 1-2 TABLETS ONCE A DAY AS NEEDED
     Route: 048
     Dates: start: 20100427, end: 20100706
  179. AMITRIPTYLINE HCL [Concomitant]
     Route: 048
     Dates: start: 20080915, end: 20081103
  180. AMITRIPTYLINE HCL [Concomitant]
     Route: 048
     Dates: start: 20090504, end: 20090804
  181. AMITRIPTYLINE HCL [Concomitant]
     Route: 048
     Dates: start: 20091005, end: 20091123
  182. ALBUTEROL SULFATE HF [Concomitant]
     Dosage: TWO PUFFS EVERY FOUR TO SIX HOURS
     Route: 055
     Dates: start: 20090804, end: 20091005
  183. POTASSIUM CHLORIDE [Concomitant]
     Route: 048
     Dates: start: 20091021, end: 20091123
  184. POTASSIUM CHLORIDE [Concomitant]
     Route: 048
     Dates: start: 20100210
  185. DICYCLOMINE [Concomitant]
     Route: 048
     Dates: start: 20100927
  186. CELEXA [Concomitant]
     Route: 048
     Dates: start: 20090813, end: 20091109
  187. PRAVASTATIN [Concomitant]
     Route: 048
     Dates: start: 20100507, end: 20100903
  188. DUONEB [Concomitant]
     Dosage: 2.5/0.5 MG/3 4 TIMES A DAY
     Dates: start: 20090804, end: 20090804
  189. TESSALON [Concomitant]
     Route: 048
     Dates: start: 20091123, end: 20091207
  190. METHIMAZOLE [Concomitant]
     Route: 048
     Dates: start: 20091229, end: 20100903

REACTIONS (16)
  - BACK PAIN [None]
  - SYNCOPE [None]
  - RADIOTHERAPY [None]
  - MACULAR DEGENERATION [None]
  - LABILE BLOOD PRESSURE [None]
  - CARDIAC FAILURE CONGESTIVE [None]
  - BLINDNESS [None]
  - HEART VALVE INCOMPETENCE [None]
  - RENAL IMPAIRMENT [None]
  - CHRONIC OBSTRUCTIVE PULMONARY DISEASE [None]
  - HEART RATE IRREGULAR [None]
  - DRUG DOSE OMISSION [None]
  - CORONARY ARTERIAL STENT INSERTION [None]
  - LOSS OF CONSCIOUSNESS [None]
  - URINE ODOUR ABNORMAL [None]
  - HEART VALVE CALCIFICATION [None]
